FAERS Safety Report 4417464-X (Version None)
Quarter: 2004Q3

REPORT INFORMATION
  Report Type: 
  Country: None (occurrence: None)
  Receive Date: 20040803
  Receipt Date: 20040723
  Transmission Date: 20050211
  Serious: Yes (Hospitalization)
  Sender: FDA-Public Use
  Company Number: S04-USA-04401-01

PATIENT
  Age: 50 Year
  Sex: Female

DRUGS (5)
  1. LEXAPRO [Suspect]
  2. PSORIASIS MEDICATION (NOS) [Suspect]
     Indication: PSORIASIS
  3. CELEBREX [Concomitant]
     Indication: ARTHRITIS
  4. OIL OF OREGANO [Concomitant]
  5. INDERAL [Concomitant]

REACTIONS (9)
  - ANGER [None]
  - BURNS SECOND DEGREE [None]
  - EUPHORIC MOOD [None]
  - EXCITABILITY [None]
  - FEELING DRUNK [None]
  - MARKEDLY REDUCED DIETARY INTAKE [None]
  - MEMORY IMPAIRMENT [None]
  - OVERDOSE [None]
  - SPEECH DISORDER [None]
